FAERS Safety Report 9103363 (Version 1)
Quarter: 2013Q1

REPORT INFORMATION
  Report Type: Spontaneous
  Country: IT (occurrence: IT)
  Receive Date: 20130219
  Receipt Date: 20130219
  Transmission Date: 20140127
  Serious: Yes (Hospitalization)
  Sender: FDA-Public Use
  Company Number: PHHY2013IT012967

PATIENT
  Sex: Female

DRUGS (1)
  1. INDACATEROL MALEATE [Suspect]

REACTIONS (6)
  - Hypersensitivity [Unknown]
  - Pruritus generalised [Unknown]
  - Erythema [Unknown]
  - Urticaria [Unknown]
  - Blood pressure increased [Unknown]
  - Heart rate increased [Unknown]
